FAERS Safety Report 21247216 (Version 1)
Quarter: 2022Q3

REPORT INFORMATION
  Report Type: Spontaneous
  Country: IT (occurrence: IT)
  Receive Date: 20220824
  Receipt Date: 20220824
  Transmission Date: 20221027
  Serious: Yes (Other)
  Sender: FDA-Public Use
  Company Number: None

PATIENT
  Age: 79 Year
  Sex: Female

DRUGS (4)
  1. VIGAMOX [Suspect]
     Active Substance: MOXIFLOXACIN HYDROCHLORIDE
     Indication: Eye infection
     Dosage: 4 DRP, QD (4 GTT / DIE)
     Route: 047
     Dates: start: 20220616, end: 20220618
  2. VIGAMOX [Suspect]
     Active Substance: MOXIFLOXACIN HYDROCHLORIDE
     Dosage: UNK
     Route: 061
  3. GANCICLOVIR [Suspect]
     Active Substance: GANCICLOVIR
     Indication: Eye infection
     Dosage: UNK (4 GTT / DIE)
     Route: 047
     Dates: start: 20220616, end: 20220618
  4. ACYCLOVIR [Concomitant]
     Active Substance: ACYCLOVIR
     Indication: Herpes virus infection
     Dosage: 800 MG (800 MG / DIE)
     Route: 048

REACTIONS (3)
  - Angioedema [Recovered/Resolved]
  - Drug hypersensitivity [Recovered/Resolved]
  - Erythema [Recovered/Resolved]

NARRATIVE: CASE EVENT DATE: 20220618
